FAERS Safety Report 7220762-8 (Version None)
Quarter: 2011Q1

REPORT INFORMATION
  Report Type: 
  Country: None (occurrence: None)
  Receive Date: 20110111
  Receipt Date: 20110104
  Transmission Date: 20110831
  Serious: Yes (Other)
  Sender: FDA-Public Use
  Company Number: FR-PFIZER INC-2011001347

PATIENT
  Age: 36 Year
  Sex: Female

DRUGS (2)
  1. PROPOFAN [Concomitant]
     Dosage: UNK
  2. RELPAX [Suspect]
     Dosage: UNK

REACTIONS (3)
  - HEADACHE [None]
  - DRUG ABUSE [None]
  - OVERDOSE [None]
